FAERS Safety Report 10723036 (Version 1)
Quarter: 2015Q1

REPORT INFORMATION
  Report Type: Spontaneous
  Country: IN (occurrence: None)
  Receive Date: 20150114
  Receipt Date: 20150114
  Transmission Date: 20150721
  Serious: Yes (Hospitalization)
  Sender: FDA-Public Use
  Company Number: 2014HINLIT1048

PATIENT
  Age: 51 Year
  Sex: Female

DRUGS (10)
  1. FLUCONAZOLE. [Concomitant]
     Active Substance: FLUCONAZOLE
  2. TENOFOVIR [Suspect]
     Active Substance: TENOFOVIR
     Indication: HIV INFECTION
  3. GANCICLOVIR. [Suspect]
     Active Substance: GANCICLOVIR
     Indication: DECREASED APPETITE
     Route: 048
  4. GANCICLOVIR. [Suspect]
     Active Substance: GANCICLOVIR
     Indication: DYSPHAGIA
     Route: 048
  5. SODIUM BICARBONATE (NAHCO3), (SODIUM BICARBONATE (NAHCO3) [Concomitant]
  6. POTASSIUM CHLORIDE (KCL) (POTASSIUIM CHLORIDE (KCL) [Concomitant]
  7. COTRIMOXAZOLE [Concomitant]
     Active Substance: SULFAMETHOXAZOLE\TRIMETHOPRIM
  8. EMTRICITABINE [Concomitant]
     Active Substance: EMTRICITABINE
  9. EFAVIRENZ [Concomitant]
     Active Substance: EFAVIRENZ
  10. 25% DEXTROSE [Concomitant]

REACTIONS (11)
  - Pallor [None]
  - Heart rate increased [None]
  - Drug interaction [None]
  - Metabolic acidosis [None]
  - Hypophagia [None]
  - Depressed level of consciousness [None]
  - Acute kidney injury [None]
  - Cerebral atrophy [None]
  - Vomiting [None]
  - Blood pressure decreased [None]
  - Blood glucose decreased [None]
